FAERS Safety Report 9613295 (Version 1)
Quarter: 2013Q4

REPORT INFORMATION
  Report Type: Spontaneous
  Country: FR (occurrence: FR)
  Receive Date: 20131010
  Receipt Date: 20131010
  Transmission Date: 20140711
  Serious: Yes (Hospitalization)
  Sender: FDA-Public Use
  Company Number: FR-BRISTOL-MYERS SQUIBB COMPANY-19515071

PATIENT
  Age: 67 Year
  Sex: Male

DRUGS (3)
  1. AZACTAM [Suspect]
     Indication: PROSTATITIS
     Dates: start: 20130819, end: 20130821
  2. AMIKLIN [Suspect]
     Indication: PROSTATITIS
     Dates: start: 20130817, end: 20130821
  3. BACTRIM [Suspect]
     Indication: PROSTATITIS
     Dates: start: 20130812, end: 20130819

REACTIONS (7)
  - Meningitis aseptic [Recovered/Resolved]
  - Hepatocellular injury [Recovered/Resolved]
  - Cholestasis [Recovered/Resolved]
  - Confusional state [Recovered/Resolved]
  - Somnolence [Recovered/Resolved]
  - Pyrexia [Recovered/Resolved]
  - Asthenia [Recovered/Resolved]
